FAERS Safety Report 14775737 (Version 1)
Quarter: 2018Q2

REPORT INFORMATION
  Report Type: Spontaneous
  Country: FR (occurrence: FR)
  Receive Date: 20180418
  Receipt Date: 20180418
  Transmission Date: 20180711
  Serious: Yes (Other)
  Sender: FDA-Public Use
  Company Number: FR-REGENERON PHARMACEUTICALS, INC.-2018-19906

PATIENT

DRUGS (4)
  1. EYLEA [Suspect]
     Active Substance: AFLIBERCEPT
     Dosage: 20TH INJECTION, LAST INJECTION PRIOR TO EVENT
     Dates: start: 20180203, end: 20180203
  2. ALLERGODIL C [Concomitant]
     Indication: PRODUCT USED FOR UNKNOWN INDICATION
  3. EYLEA [Suspect]
     Active Substance: AFLIBERCEPT
     Indication: PRODUCT USED FOR UNKNOWN INDICATION
     Dosage: PATIENT RECEIVED A TOTAL OF 20 INJECTIONS PRIOR TO EVENT, RIGHT EYE/LEFT EYE
  4. OFLOXACINE A [Concomitant]
     Indication: PRODUCT USED FOR UNKNOWN INDICATION

REACTIONS (2)
  - Blindness transient [Recovering/Resolving]
  - Pseudoendophthalmitis [Recovered/Resolved]

NARRATIVE: CASE EVENT DATE: 20180206
